FAERS Safety Report 8520777 (Version 2)
Quarter: 2012Q4

REPORT INFORMATION
  Report Type: 
  Country: US (occurrence: US)
  Receive Date: 20120418
  Receipt Date: 20121120
  Transmission Date: 20130627
  Serious: No
  Sender: FDA-Public Use
  Company Number: US-ASTRAZENECA-2011SE11138

PATIENT
  Age: 51 Year
  Sex: Female

DRUGS (2)
  1. NEXIUM [Suspect]
     Route: 048
  2. TOPROL XL [Suspect]
     Route: 048

REACTIONS (7)
  - Accident [Unknown]
  - Facial bones fracture [Unknown]
  - Joint injury [Unknown]
  - Contusion [Unknown]
  - Ligament sprain [Unknown]
  - Ligament sprain [Unknown]
  - Blood cholesterol increased [Unknown]
